FAERS Safety Report 7864744-1 (Version None)
Quarter: 2011Q4

REPORT INFORMATION
  Report Type: 
  Country: None (occurrence: None)
  Receive Date: 20111028
  Receipt Date: 20111019
  Transmission Date: 20120403
  Serious: Yes (Death, Other)
  Sender: FDA-Public Use
  Company Number: US-ELI_LILLY_AND_COMPANY-US201110005498

PATIENT
  Age: 58 Year
  Sex: Female

DRUGS (3)
  1. ZYPREXA [Suspect]
     Dosage: 10 MG, UNK
  2. XANAX [Concomitant]
  3. ZYPREXA [Suspect]
     Indication: SCHIZOAFFECTIVE DISORDER
     Dosage: 10 MG, QD

REACTIONS (4)
  - DEATH [None]
  - NEPHROPATHY [None]
  - FLUID RETENTION [None]
  - HEPATIC FAILURE [None]
